FAERS Safety Report 16378278 (Version 1)
Quarter: 2019Q2

REPORT INFORMATION
  Report Type: Spontaneous
  Country: CI (occurrence: CI)
  Receive Date: 20190531
  Receipt Date: 20190531
  Transmission Date: 20190711
  Serious: Yes (Other)
  Sender: FDA-Public Use
  Company Number: PHHY2019CI125314

PATIENT
  Age: 72 Year
  Sex: Male

DRUGS (1)
  1. DUOTRAV (ALC) [Suspect]
     Active Substance: TIMOLOL MALEATE\TRAVOPROST
     Indication: GLAUCOMA
     Dosage: 1 GTT, QD
     Route: 061

REACTIONS (1)
  - Exophthalmos [Unknown]
